FAERS Safety Report 19461749 (Version 1)
Quarter: 2021Q2

REPORT INFORMATION
  Report Type: Spontaneous
  Country: IT (occurrence: IT)
  Receive Date: 20210625
  Receipt Date: 20210625
  Transmission Date: 20210717
  Serious: Yes (Disabling)
  Sender: FDA-Public Use
  Company Number: IT-JNJFOC-20210645533

PATIENT
  Age: 26 Year
  Sex: Male
  Weight: 60 kg

DRUGS (1)
  1. MINOXIDIL. [Suspect]
     Active Substance: MINOXIDIL
     Indication: ALOPECIA
     Route: 003
     Dates: start: 20190124, end: 20200204

REACTIONS (9)
  - Psychotic disorder [Unknown]
  - Change of bowel habit [Unknown]
  - Suicidal ideation [Unknown]
  - Loss of libido [Unknown]
  - Testicular pain [Unknown]
  - Depression [Unknown]
  - Erectile dysfunction [Unknown]
  - Sexual dysfunction [Unknown]
  - Coccydynia [Unknown]

NARRATIVE: CASE EVENT DATE: 20191227
